FAERS Safety Report 6692271-6 (Version None)
Quarter: 2010Q2

REPORT INFORMATION
  Report Type: 
  Country: None (occurrence: None)
  Receive Date: 20100415
  Receipt Date: 20100401
  Transmission Date: 20101027
  Serious: No
  Sender: FDA-Public Use
  Company Number: 2010-00359

PATIENT
  Age: 63 Year
  Sex: Female
  Weight: 77.1115 kg

DRUGS (7)
  1. ZICAM COLD REMEDY RAPIDMELTS WITH VITAMIN C [Suspect]
     Dosage: EVERY 3 HOURS - ONGOING
     Dates: start: 20100331
  2. SIMVASTATIN [Concomitant]
  3. NEXIUM [Concomitant]
  4. FEMARA [Concomitant]
  5. CENTRUM SILVER [Concomitant]
  6. MULTI-VITAMIN [Concomitant]
  7. OSCAL [Concomitant]

REACTIONS (2)
  - AGEUSIA [None]
  - NAUSEA [None]
